FAERS Safety Report 11686675 (Version 1)
Quarter: 2015Q4

REPORT INFORMATION
  Report Type: Spontaneous
  Country: JP (occurrence: JP)
  Receive Date: 20151030
  Receipt Date: 20151030
  Transmission Date: 20160304
  Serious: Yes (Hospitalization)
  Sender: FDA-Public Use
  Company Number: PHJP2000JP005880

PATIENT
  Age: 13 Year
  Sex: Female

DRUGS (3)
  1. VOLTAREN [Suspect]
     Active Substance: DICLOFENAC SODIUM
     Indication: PYREXIA
  2. LOXONIN [Concomitant]
     Active Substance: LOXOPROFEN SODIUM
     Indication: PRODUCT USED FOR UNKNOWN INDICATION
     Route: 065
  3. VOLTAREN [Suspect]
     Active Substance: DICLOFENAC SODIUM
     Indication: ABDOMINAL DISCOMFORT

REACTIONS (9)
  - Glucose urine [Recovered/Resolved]
  - Tubulointerstitial nephritis [Unknown]
  - Malaise [Unknown]
  - Proteinuria [Recovered/Resolved]
  - Pyrexia [Not Recovered/Not Resolved]
  - Inflammation [Unknown]
  - Abdominal discomfort [Unknown]
  - Weight decreased [Unknown]
  - Uveitis [Recovered/Resolved]
